FAERS Safety Report 4701035-1 (Version None)
Quarter: 2005Q2

REPORT INFORMATION
  Report Type: 
  Country: None (occurrence: None)
  Receive Date: 20050624
  Receipt Date: 20050610
  Transmission Date: 20051028
  Serious: Yes (Hospitalization)
  Sender: FDA-Public Use
  Company Number: 2005-0008407

PATIENT
  Sex: Female

DRUGS (4)
  1. VIREAD [Suspect]
     Dates: start: 20050101
  2. DIDANOSINE 9DIDANOSINE) [Concomitant]
  3. ATAZANAVIR (ATAZANAVIR0 [Concomitant]
  4. RITONAVIR (RITONAVIR) [Concomitant]

REACTIONS (3)
  - FANCONI SYNDROME ACQUIRED [None]
  - HAEMORRHAGE [None]
  - MALAISE [None]
